FAERS Safety Report 5420084-1 (Version None)
Quarter: 2007Q3

REPORT INFORMATION
  Report Type: 
  Country: None (occurrence: None)
  Receive Date: 20070820
  Receipt Date: 20070807
  Transmission Date: 20080115
  Serious: Yes (Other)
  Sender: FDA-Public Use
  Company Number: US-SHR-US-2007-030386

PATIENT

DRUGS (1)
  1. CAMPATH [Suspect]

REACTIONS (3)
  - AUTOIMMUNE DISORDER [None]
  - OPPORTUNISTIC INFECTION [None]
  - TRANSPLANT REJECTION [None]
